FAERS Safety Report 13131480 (Version 3)
Quarter: 2017Q1

REPORT INFORMATION
  Report Type: Spontaneous
  Country: CN (occurrence: CN)
  Receive Date: 20170119
  Receipt Date: 20170209
  Transmission Date: 20170428
  Serious: Yes (Hospitalization)
  Sender: FDA-Public Use
  Company Number: CN-ELI_LILLY_AND_COMPANY-CN201701004781

PATIENT
  Age: 70 Year
  Sex: Male
  Weight: 80 kg

DRUGS (9)
  1. GLUCOBAY [Concomitant]
     Active Substance: ACARBOSE
  2. HUMALOG MIX75/25 [Suspect]
     Active Substance: INSULIN LISPRO
     Indication: DIABETES MELLITUS
     Dosage: 18 IU, BID
     Route: 058
     Dates: start: 2014
  3. HUMULIN R [Suspect]
     Active Substance: INSULIN HUMAN
     Indication: DIABETES MELLITUS
     Dosage: 16 IU, BID
     Route: 058
     Dates: start: 201612
  4. HUMULIN R [Suspect]
     Active Substance: INSULIN HUMAN
     Dosage: 20 IU, BID
     Route: 058
     Dates: end: 201612
  5. HUMALOG MIX75/25 [Suspect]
     Active Substance: INSULIN LISPRO
     Dosage: 11 TO 12 IU, BID
     Route: 058
  6. HUMULIN R [Suspect]
     Active Substance: INSULIN HUMAN
     Dosage: 18 IU, BID
     Route: 058
  7. HUMALOG MIX75/25 [Suspect]
     Active Substance: INSULIN LISPRO
     Dosage: 20 IU, BID
     Route: 058
  8. HUMALOG MIX75/25 [Suspect]
     Active Substance: INSULIN LISPRO
     Dosage: 24 IU, BID
     Route: 058
  9. TAMSULOSIN HYDROCHLORIDE. [Concomitant]
     Active Substance: TAMSULOSIN HYDROCHLORIDE

REACTIONS (5)
  - Hypoglycaemia [Unknown]
  - Hypertension [Recovered/Resolved]
  - Blood glucose decreased [Unknown]
  - Drug ineffective [Unknown]
  - Prostatic pain [Recovered/Resolved]

NARRATIVE: CASE EVENT DATE: 201612
